FAERS Safety Report 21839391 (Version 5)
Quarter: 2023Q4

REPORT INFORMATION
  Report Type: Spontaneous
  Country: US (occurrence: US)
  Receive Date: 20230109
  Receipt Date: 20231030
  Transmission Date: 20240110
  Serious: Yes (Hospitalization)
  Sender: FDA-Public Use
  Company Number: US-KARYOPHARM-2022KPT001532

PATIENT

DRUGS (12)
  1. XPOVIO [Suspect]
     Active Substance: SELINEXOR
     Indication: Plasma cell myeloma
     Dosage: 60 MG, WEEKLY
     Route: 048
     Dates: start: 20221128, end: 2023
  2. XPOVIO [Suspect]
     Active Substance: SELINEXOR
     Dosage: 40 MG, WEEKLY
     Route: 048
     Dates: end: 202305
  3. XPOVIO [Suspect]
     Active Substance: SELINEXOR
     Dosage: 40 MG, WEEKLY
     Route: 048
     Dates: start: 2023
  4. DEXAMETHASONE [Concomitant]
     Active Substance: DEXAMETHASONE
  5. GEMFIBROZIL [Concomitant]
     Active Substance: GEMFIBROZIL
  6. LOSARTAN [Concomitant]
     Active Substance: LOSARTAN
  7. ONDANSETRON [Concomitant]
     Active Substance: ONDANSETRON
  8. PROCHLORPERAZINE [Concomitant]
     Active Substance: PROCHLORPERAZINE
  9. VALACYCLOVIR HYDROCHLORIDE [Concomitant]
     Active Substance: VALACYCLOVIR HYDROCHLORIDE
  10. PANTOPRAZOLE SODIUM [Concomitant]
     Active Substance: PANTOPRAZOLE SODIUM
  11. OXYBUTYNIN [Concomitant]
     Active Substance: OXYBUTYNIN
     Dosage: 5 UNK
  12. POMALYST [Concomitant]
     Active Substance: POMALIDOMIDE

REACTIONS (9)
  - Infection [Unknown]
  - Arthralgia [Unknown]
  - Musculoskeletal pain [Unknown]
  - Bone pain [Unknown]
  - Urinary tract infection [Unknown]
  - Insomnia [Unknown]
  - Cataract operation [Unknown]
  - Vision blurred [Unknown]
  - Nausea [Not Recovered/Not Resolved]

NARRATIVE: CASE EVENT DATE: 20221128
